FAERS Safety Report 9481229 (Version 3)
Quarter: 2013Q4

REPORT INFORMATION
  Report Type: Spontaneous
  Country: US (occurrence: US)
  Receive Date: 20130828
  Receipt Date: 20131011
  Transmission Date: 20140711
  Serious: No
  Sender: FDA-Public Use
  Company Number: US-BIOGENIDEC-2013BI080750

PATIENT
  Age: 46 Year
  Sex: Female

DRUGS (1)
  1. TYSABRI [Suspect]
     Indication: MULTIPLE SCLEROSIS
     Route: 042
     Dates: start: 20130621

REACTIONS (9)
  - Feeling abnormal [Unknown]
  - Dizziness [Unknown]
  - Cystitis [Not Recovered/Not Resolved]
  - Pyrexia [Unknown]
  - Urinary tract infection [Unknown]
  - Vertigo [Unknown]
  - Night sweats [Unknown]
  - Hot flush [Not Recovered/Not Resolved]
  - Multiple sclerosis relapse [Not Recovered/Not Resolved]
